FAERS Safety Report 5514034-7 (Version None)
Quarter: 2007Q4

REPORT INFORMATION
  Report Type: 
  Country: None (occurrence: None)
  Receive Date: 20071109
  Receipt Date: 20071109
  Transmission Date: 20080405
  Serious: Yes (Hospitalization)
  Sender: FDA-Public Use
  Company Number: None

PATIENT
  Sex: Female
  Weight: 73 kg

DRUGS (1)
  1. GLUCOPHAGE [Suspect]
     Indication: POLYCYSTIC OVARIES
     Dosage: 500MG  1 A.M., 2 P.M.  PO
     Route: 048
     Dates: start: 20070920, end: 20071105

REACTIONS (4)
  - AUTOIMMUNE DISORDER [None]
  - GASTROENTERITIS [None]
  - HEPATITIS ACUTE [None]
  - HEPATOTOXICITY [None]
